FAERS Safety Report 9707054 (Version 1)
Quarter: 2013Q4

REPORT INFORMATION
  Report Type: Spontaneous
  Country: US (occurrence: US)
  Receive Date: 20131125
  Receipt Date: 20131125
  Transmission Date: 20140711
  Serious: No
  Sender: FDA-Public Use
  Company Number: US-PFIZER INC-2013335138

PATIENT
  Sex: Female

DRUGS (2)
  1. PRISTIQ [Suspect]
     Dosage: 50 MG, 1X/DAY
  2. SEROQUEL XR [Concomitant]
     Dosage: UNK

REACTIONS (2)
  - Local swelling [Recovered/Resolved]
  - Skin discolouration [Recovered/Resolved]
